FAERS Safety Report 7692202-6 (Version None)
Quarter: 2011Q3

REPORT INFORMATION
  Report Type: 
  Country: None (occurrence: None)
  Receive Date: 20110818
  Receipt Date: 20110228
  Transmission Date: 20111222
  Serious: Yes (Life-Threatening, Hospitalization)
  Sender: FDA-Public Use
  Company Number: ES-BAYER-2011-008800

PATIENT
  Age: 67 Year
  Sex: Male

DRUGS (1)
  1. MOXIFLOXACIN [Suspect]
     Indication: PRODUCT USED FOR UNKNOWN INDICATION
     Route: 048
     Dates: start: 20101230, end: 20101230

REACTIONS (3)
  - CARDIO-RESPIRATORY ARREST [None]
  - PRURITUS GENERALISED [None]
  - TONGUE PRURITUS [None]
